FAERS Safety Report 9224899 (Version 3)
Quarter: 2013Q3

REPORT INFORMATION
  Report Type: Spontaneous
  Country: US (occurrence: US)
  Receive Date: 20130411
  Receipt Date: 20130815
  Transmission Date: 20140515
  Serious: Yes (Hospitalization)
  Sender: FDA-Public Use
  Company Number: US-SANOFI-AVENTIS-2013SA036809

PATIENT
  Age: 62 Year
  Sex: Female
  Weight: 68.03 kg

DRUGS (7)
  1. AUBAGIO [Suspect]
     Indication: MULTIPLE SCLEROSIS
     Route: 048
     Dates: start: 20130227, end: 20130306
  2. AUBAGIO [Suspect]
     Indication: MULTIPLE SCLEROSIS
     Dosage: NOT SURE IF SHE RESTARTED IN MARCH 2013 OR APRIL 2013.
     Route: 048
  3. L-THYROXINE [Concomitant]
     Indication: THYROID DISORDER
     Route: 065
  4. GEMFIBROZIL [Concomitant]
     Indication: BLOOD CHOLESTEROL
     Route: 065
  5. OXYBUTYNIN [Concomitant]
     Indication: BLADDER DISORDER
     Route: 065
  6. CYMBALTA [Concomitant]
     Indication: AFFECTIVE DISORDER
     Route: 065
  7. ENDOCET [Concomitant]
     Indication: HEADACHE
     Route: 065

REACTIONS (6)
  - Appendicitis perforated [Unknown]
  - Memory impairment [Unknown]
  - Hepatic enzyme increased [Recovered/Resolved]
  - Nausea [Recovered/Resolved]
  - Alopecia [Not Recovered/Not Resolved]
  - Drug dose omission [Unknown]
